FAERS Safety Report 7146221-9 (Version None)
Quarter: 2010Q4

REPORT INFORMATION
  Report Type: 
  Country: None (occurrence: None)
  Receive Date: 20101208
  Receipt Date: 20101203
  Transmission Date: 20110411
  Serious: Yes (Other)
  Sender: FDA-Public Use
  Company Number: BR-ROXANE LABORATORIES, INC.-2010-DE-06746GD

PATIENT
  Sex: Female

DRUGS (2)
  1. PREDNISONE [Suspect]
     Indication: ACQUIRED EPIDERMOLYSIS BULLOSA
     Dosage: 100 MG
  2. THALIDOMIDE [Suspect]
     Indication: ACQUIRED EPIDERMOLYSIS BULLOSA
     Dosage: 100 MG

REACTIONS (6)
  - DIABETES MELLITUS [None]
  - DRUG INEFFECTIVE [None]
  - DYSPHAGIA [None]
  - DYSPHONIA [None]
  - EPISTAXIS [None]
  - HYPERTENSION [None]
